FAERS Safety Report 7743403-X (Version None)
Quarter: 2011Q3

REPORT INFORMATION
  Report Type: 
  Country: None (occurrence: None)
  Receive Date: 20110912
  Receipt Date: 20110901
  Transmission Date: 20111222
  Serious: Yes (Death, Life-Threatening, Hospitalization)
  Sender: FDA-Public Use
  Company Number: PHHO2011US12468

PATIENT
  Sex: Male

DRUGS (2)
  1. AFINITOR [Suspect]
     Indication: THYROID CANCER
     Dosage: UNK
     Dates: start: 20110429, end: 20110718
  2. SORAFENIB [Suspect]
     Indication: THYROID CANCER
     Dosage: UNK
     Dates: start: 20110429, end: 20110718

REACTIONS (7)
  - RESPIRATORY FAILURE [None]
  - HYPERGLYCAEMIA [None]
  - LUNG INFECTION [None]
  - CARDIAC ARREST [None]
  - ATRIAL FIBRILLATION [None]
  - ANAEMIA [None]
  - TROPONIN T INCREASED [None]
